FAERS Safety Report 4346398-4 (Version None)
Quarter: 2004Q2

REPORT INFORMATION
  Report Type: 
  Country: None (occurrence: None)
  Receive Date: 20040426
  Receipt Date: 20040219
  Transmission Date: 20050107
  Serious: No
  Sender: FDA-Public Use
  Company Number: US-GLAXOSMITHKLINE-A0498834A

PATIENT
  Sex: Male

DRUGS (5)
  1. ZOFRAN [Suspect]
     Indication: ILL-DEFINED DISORDER
     Dosage: 8MG FIVE TIMES PER DAY
     Route: 048
  2. ANAFRANIL [Concomitant]
  3. ATIVAN [Concomitant]
  4. BENADRYL [Concomitant]
  5. PEPCID [Concomitant]

REACTIONS (1)
  - ORTHOSTATIC HYPOTENSION [None]
